FAERS Safety Report 17818647 (Version 3)
Quarter: 2020Q2

REPORT INFORMATION
  Report Type: Spontaneous
  Country: SG (occurrence: SG)
  Receive Date: 20200522
  Receipt Date: 20200617
  Transmission Date: 20200714
  Serious: Yes (Life-Threatening, Other)
  Sender: FDA-Public Use
  Company Number: SG-PFIZER INC-2020196495

PATIENT
  Age: 55 Year
  Sex: Male

DRUGS (4)
  1. CLEXANE [Concomitant]
     Active Substance: ENOXAPARIN SODIUM
     Indication: POSTOPERATIVE CARE
     Dosage: UNK
  2. CLEXANE [Concomitant]
     Active Substance: ENOXAPARIN SODIUM
     Indication: PROPHYLAXIS
  3. HEPARIN SODIUM. [Suspect]
     Active Substance: HEPARIN SODIUM
     Indication: INTRAOPERATIVE CARE
     Dosage: UNK
  4. HEPARIN SODIUM. [Suspect]
     Active Substance: HEPARIN SODIUM
     Indication: PROPHYLAXIS

REACTIONS (2)
  - Cerebrovascular accident [Recovering/Resolving]
  - Heparin-induced thrombocytopenia [Recovered/Resolved]
